FAERS Safety Report 9540753 (Version 1)
Quarter: 2013Q3

REPORT INFORMATION
  Report Type: Spontaneous
  Country: US (occurrence: US)
  Receive Date: 20130920
  Receipt Date: 20130920
  Transmission Date: 20140515
  Serious: Yes (Other)
  Sender: FDA-Public Use
  Company Number: US-ABBVIE-13P-163-1148673-00

PATIENT
  Age: 17 Year
  Sex: Male

DRUGS (3)
  1. DEPAKOTE ER [Suspect]
     Indication: ATTENTION DEFICIT/HYPERACTIVITY DISORDER
     Dates: start: 20130903
  2. DEPAKOTE ER [Suspect]
     Indication: BIPOLAR DISORDER
  3. SEROQUEL [Concomitant]
     Indication: INSOMNIA

REACTIONS (3)
  - Anger [Unknown]
  - Verbal abuse [Recovered/Resolved]
  - Physical assault [Recovered/Resolved]
